FAERS Safety Report 7764640-4 (Version None)
Quarter: 2011Q3

REPORT INFORMATION
  Report Type: 
  Country: None (occurrence: None)
  Receive Date: 20110921
  Receipt Date: 20110916
  Transmission Date: 20111222
  Serious: Yes (Death)
  Sender: FDA-Public Use
  Company Number: PHEH2011US04162

PATIENT
  Sex: Male
  Weight: 52 kg

DRUGS (5)
  1. ANTIBIOTICS [Concomitant]
  2. CARBATROL [Concomitant]
     Indication: CONVULSION
     Dosage: 400 MG, BID
     Route: 048
     Dates: start: 20100107
  3. PENICILLIN [Concomitant]
     Indication: SEPSIS
     Dosage: 250 MG, BID
     Route: 048
     Dates: start: 19930708
  4. DDAVP [Concomitant]
     Indication: VOMITING
     Dosage: 0.1 MG, QHS
     Route: 048
     Dates: start: 19990101
  5. EXJADE [Suspect]
     Indication: IRON OVERLOAD
     Dosage: 1000 MG, QD
     Route: 048
     Dates: start: 20061001

REACTIONS (1)
  - MYOCARDIAL INFARCTION [None]
